FAERS Safety Report 11856087 (Version 10)
Quarter: 2017Q3

REPORT INFORMATION
  Report Type: Report from Study
  Country: CA (occurrence: CA)
  Receive Date: 20151221
  Receipt Date: 20170803
  Transmission Date: 20171127
  Serious: Yes (Hospitalization, Other)
  Sender: FDA-Public Use
  Company Number: PHHY2015CA120340

PATIENT
  Age: 64 Year
  Sex: Female

DRUGS (4)
  1. SANDOSTATIN LAR DEPOT [Suspect]
     Active Substance: OCTREOTIDE ACETATE
     Indication: CARCINOID TUMOUR
     Dosage: 30 MG, QMO (EVERY 04 WEEKS)
     Route: 030
     Dates: start: 20150729
  2. INSULIN [Concomitant]
     Active Substance: INSULIN NOS
     Indication: PRODUCT USED FOR UNKNOWN INDICATION
     Route: 065
     Dates: start: 2017
  3. SANDOSTATIN LAR DEPOT [Suspect]
     Active Substance: OCTREOTIDE ACETATE
     Indication: NEUROENDOCRINE CARCINOMA METASTATIC
  4. PMS - METOPROLOL [Concomitant]
     Indication: PRODUCT USED FOR UNKNOWN INDICATION
     Route: 065

REACTIONS (14)
  - Abdominal pain upper [Recovering/Resolving]
  - Blood pressure increased [Recovering/Resolving]
  - Thrombosis [Unknown]
  - Vomiting [Recovering/Resolving]
  - Arthralgia [Unknown]
  - Hypertension [Unknown]
  - Blood glucose increased [Recovering/Resolving]
  - Back pain [Not Recovered/Not Resolved]
  - Back injury [Unknown]
  - Hiatus hernia [Recovering/Resolving]
  - Joint swelling [Unknown]
  - Spinal column stenosis [Unknown]
  - Diarrhoea [Unknown]
  - Blood pressure systolic increased [Unknown]

NARRATIVE: CASE EVENT DATE: 20151127
